FAERS Safety Report 6643627-9 (Version None)
Quarter: 2010Q1

REPORT INFORMATION
  Report Type: 
  Country: None (occurrence: None)
  Receive Date: 20100320
  Receipt Date: 20100310
  Transmission Date: 20100710
  Serious: Yes (Life-Threatening, Disabling)
  Sender: FDA-Public Use
  Company Number: FR-JNJFOC-20100304517

PATIENT
  Age: 39 Year
  Sex: Male

DRUGS (1)
  1. IXPRIM [Suspect]
     Indication: BACK PAIN
     Dosage: 6-8 TABLETS A DAY
     Route: 048

REACTIONS (4)
  - AGGRESSION [None]
  - DELIRIUM [None]
  - HALLUCINATION, AUDITORY [None]
  - HALLUCINATION, VISUAL [None]
